FAERS Safety Report 19899202 (Version 5)
Quarter: 2022Q2

REPORT INFORMATION
  Report Type: Spontaneous
  Country: IN (occurrence: IN)
  Receive Date: 20210929
  Receipt Date: 20220518
  Transmission Date: 20220721
  Serious: Yes (Hospitalization, Other)
  Sender: FDA-Public Use
  Company Number: IN-PFIZER INC-2021666264

PATIENT
  Age: 56 Year
  Sex: Female

DRUGS (2)
  1. PALBOCICLIB [Suspect]
     Active Substance: PALBOCICLIB
     Indication: Breast cancer metastatic
     Dosage: 125 MG, CYCLIC (ONCE DAILY FOR 21 DAYS THEN OFF FOR A WEEK)
     Route: 048
     Dates: start: 20210303
  2. LETROZOLE [Concomitant]
     Active Substance: LETROZOLE
     Indication: Breast cancer metastatic
     Dosage: 2.5 MG, 1X/DAY X 30 DAYS

REACTIONS (17)
  - Back pain [Recovered/Resolved]
  - Haemoglobin decreased [Unknown]
  - Red blood cell count decreased [Unknown]
  - Haematocrit decreased [Recovered/Resolved]
  - Decreased appetite [Recovered/Resolved]
  - Nausea [Recovered/Resolved]
  - Vomiting [Recovered/Resolved]
  - Constipation [Unknown]
  - Gait disturbance [Unknown]
  - Peripheral swelling [Unknown]
  - Neoplasm progression [Unknown]
  - Lymphocyte count increased [Unknown]
  - Mean cell haemoglobin increased [Unknown]
  - Mean cell haemoglobin concentration increased [Unknown]
  - Red blood cell sedimentation rate increased [Unknown]
  - Pain [Recovered/Resolved]
  - Vertigo [Unknown]

NARRATIVE: CASE EVENT DATE: 20210430
